FAERS Safety Report 17280538 (Version 1)
Quarter: 2020Q1

REPORT INFORMATION
  Report Type: Spontaneous
  Country: US (occurrence: US)
  Receive Date: 20200117
  Receipt Date: 20200117
  Transmission Date: 20200409
  Serious: No
  Sender: FDA-Public Use
  Company Number: US-UCBSA-2019039398

PATIENT

DRUGS (2)
  1. LEVETIRACETAM. [Suspect]
     Active Substance: LEVETIRACETAM
     Indication: EPILEPSY
     Dosage: UNK
  2. EPIDIOLEX [Concomitant]
     Active Substance: CANNABIDIOL
     Indication: EPILEPSY
     Dosage: 100 MG/ML AT 2-10 MG/KG/DAY, TITRATED UNTIL TOLERABILITY LIMIT OR A MAXIMUM DOSE OF 25-50 MG/KG/DAY
     Route: 048

REACTIONS (1)
  - Drug ineffective [Unknown]
